FAERS Safety Report 7241711-2 (Version None)
Quarter: 2011Q1

REPORT INFORMATION
  Report Type: 
  Country: None (occurrence: None)
  Receive Date: 20110124
  Receipt Date: 20110117
  Transmission Date: 20110831
  Serious: Yes (Death, Hospitalization, Other)
  Sender: FDA-Public Use
  Company Number: PHHY2010JP85998

PATIENT
  Age: 63 Year
  Sex: Male

DRUGS (6)
  1. AFINITOR [Suspect]
     Indication: METASTATIC RENAL CELL CARCINOMA
     Dosage: 10 MG, DAILY
     Route: 048
     Dates: start: 20101022, end: 20101207
  2. SUNITINIB MALATE [Concomitant]
     Indication: METASTATIC RENAL CELL CARCINOMA
     Dosage: 25 MG, UNK
     Route: 048
     Dates: start: 20091209, end: 20100917
  3. BETAMETHASONE [Concomitant]
     Indication: METASTATIC RENAL CELL CARCINOMA
     Dosage: 2 MG, UNK
     Route: 048
     Dates: start: 20101030
  4. DEPAKENE [Concomitant]
     Indication: METASTATIC RENAL CELL CARCINOMA
     Dosage: 400 MG, UNK
     Route: 048
     Dates: start: 20101030
  5. OPSO [Concomitant]
     Indication: METASTATIC RENAL CELL CARCINOMA
     Dosage: 10 MG, UNK
     Route: 048
     Dates: start: 20101022, end: 20101124
  6. SORAFENIB TOSILATE [Concomitant]
     Indication: METASTATIC RENAL CELL CARCINOMA
     Dosage: 800 MG, UNK
     Route: 048
     Dates: start: 20081210, end: 20091202

REACTIONS (5)
  - INTERSTITIAL LUNG DISEASE [None]
  - PLATELET COUNT DECREASED [None]
  - NEOPLASM MALIGNANT [None]
  - CEREBRAL HAEMORRHAGE [None]
  - BLOOD GLUCOSE INCREASED [None]
